FAERS Safety Report 13340122 (Version 2)
Quarter: 2017Q1

REPORT INFORMATION
  Report Type: Report from Study
  Country: NL (occurrence: NL)
  Receive Date: 20170316
  Receipt Date: 20170323
  Transmission Date: 20170428
  Serious: Yes (Hospitalization)
  Sender: FDA-Public Use
  Company Number: US-ASTRAZENECA-2017SE27593

PATIENT
  Sex: Male

DRUGS (1)
  1. SYNAGIS [Suspect]
     Active Substance: PALIVIZUMAB
     Indication: ANTIVIRAL PROPHYLAXIS
     Dosage: ON 23-JAN-2017 PATIENT RECEIVED 95 MG MONTHLY AND ON 20-FEB-2017 PATIENT RECEIVED 103 MG MONTHLY
     Route: 030
     Dates: start: 20170123, end: 20170220

REACTIONS (2)
  - Dyspnoea [Not Recovered/Not Resolved]
  - Bronchitis [Unknown]
